FAERS Safety Report 7178966 (Version 3)
Quarter: 2013Q1

REPORT INFORMATION
  Report Type: Spontaneous
  Country: PL (occurrence: PL)
  Receive Date: 20091117
  Receipt Date: 20130306
  Transmission Date: 20140127
  Serious: Yes (Other)
  Sender: FDA-Public Use
  Company Number: PHHY2009PL48047

PATIENT
  Age: 56 Year
  Sex: Female
  Weight: 58 kg

DRUGS (3)
  1. MYFORTIC [Suspect]
     Indication: IMMUNOSUPPRESSION
     Dosage: 1440 MG/DAY
     Route: 048
     Dates: start: 20090306
  2. ENCORTON [Concomitant]
     Indication: IMMUNOSUPPRESSION
     Dosage: 10 MG, UNK
     Dates: start: 20080306
  3. ADVAGRAF [Concomitant]
     Indication: IMMUNOSUPPRESSION
     Dosage: 5 MG, UNK
     Dates: start: 20090306

REACTIONS (8)
  - Renal impairment [Unknown]
  - Lipid metabolism disorder [Unknown]
  - White blood cell count increased [Unknown]
  - Urinary tract infection [Recovered/Resolved]
  - Escherichia urinary tract infection [Recovered/Resolved]
  - Pyrexia [Recovering/Resolving]
  - Chills [Recovering/Resolving]
  - Back pain [Recovered/Resolved]
